FAERS Safety Report 22127221 (Version 2)
Quarter: 2023Q2

REPORT INFORMATION
  Report Type: Spontaneous
  Country: US (occurrence: US)
  Receive Date: 20230322
  Receipt Date: 20230403
  Transmission Date: 20230722
  Serious: No
  Sender: FDA-Public Use
  Company Number: US-BAUSCHBL-2023BNL002259

PATIENT
  Age: 91 Year
  Sex: Female

DRUGS (2)
  1. BRINZOLAMIDE [Suspect]
     Active Substance: BRINZOLAMIDE
     Indication: Glaucoma
     Dosage: IT^S BEEN YEAR^S
     Route: 047
  2. ELIQUIS [Concomitant]
     Active Substance: APIXABAN
     Indication: Product used for unknown indication
     Dosage: AS DIRECTED
     Route: 048

REACTIONS (3)
  - Instillation site pain [Recovered/Resolved]
  - Instillation site discomfort [Recovered/Resolved]
  - Extra dose administered [Unknown]

NARRATIVE: CASE EVENT DATE: 20230316
